FAERS Safety Report 20201925 (Version 1)
Quarter: 2021Q4

REPORT INFORMATION
  Report Type: Spontaneous
  Country: CN (occurrence: CN)
  Receive Date: 20211217
  Receipt Date: 20211217
  Transmission Date: 20220303
  Serious: Yes (Hospitalization)
  Sender: FDA-Public Use
  Company Number: CN-AstraZeneca-2021A855838

PATIENT

DRUGS (1)
  1. ZOLADEX [Suspect]
     Active Substance: GOSERELIN ACETATE
     Indication: Radical prostatectomy
     Dosage: 10.8 MILLIGRAM, QD
     Route: 058
     Dates: start: 20211026

REACTIONS (6)
  - Rash [Recovering/Resolving]
  - Sebaceous hyperplasia [Unknown]
  - Dermatitis allergic [Unknown]
  - Skin hyperplasia [Recovering/Resolving]
  - Erythema [Recovering/Resolving]
  - Dry skin [Recovering/Resolving]

NARRATIVE: CASE EVENT DATE: 20211027
